FAERS Safety Report 5712312-X (Version None)
Quarter: 2008Q2

REPORT INFORMATION
  Report Type: 
  Country: None (occurrence: None)
  Receive Date: 20080418
  Receipt Date: 20080410
  Transmission Date: 20081010
  Serious: Yes (Other)
  Sender: FDA-Public Use
  Company Number: OPER20080057

PATIENT
  Age: 35 Year
  Sex: Female

DRUGS (2)
  1. OPANA ER [Suspect]
     Indication: PAIN
     Dosage: 10 MG, TABLET ONCE
     Dates: start: 20080222, end: 20080222
  2. LEXAPRO [Concomitant]

REACTIONS (1)
  - PARAESTHESIA [None]
